FAERS Safety Report 6191194-9 (Version None)
Quarter: 2009Q2

REPORT INFORMATION
  Report Type: 
  Country: None (occurrence: None)
  Receive Date: 20090513
  Receipt Date: 20090513
  Transmission Date: 20091009
  Serious: No
  Sender: FDA-Public Use
  Company Number: None

PATIENT
  Sex: Male
  Weight: 131.5431 kg

DRUGS (1)
  1. METFORMIN HCL ER 500MG [Suspect]
     Indication: DIABETES MELLITUS
     Dosage: 1000MG BID PO
     Route: 048
     Dates: start: 20081115, end: 20090410

REACTIONS (2)
  - BLOOD GLUCOSE INCREASED [None]
  - PRODUCT SUBSTITUTION ISSUE [None]
